FAERS Safety Report 25574830 (Version 4)
Quarter: 2025Q3

REPORT INFORMATION
  Report Type: Report from Study
  Country: US (occurrence: US)
  Receive Date: 20250718
  Receipt Date: 20250822
  Transmission Date: 20251020
  Serious: No
  Sender: BIOGEN
  Company Number: US-BIOGEN-2025BI01315759

PATIENT
  Age: 26 Year
  Sex: Female

DRUGS (4)
  1. VUMERITY [Suspect]
     Active Substance: DIROXIMEL FUMARATE
     Indication: Multiple sclerosis
     Route: 050
     Dates: start: 20250630
  2. VUMERITY [Suspect]
     Active Substance: DIROXIMEL FUMARATE
     Route: 050
  3. ZEPOSIA [Concomitant]
     Active Substance: OZANIMOD HYDROCHLORIDE
     Indication: Product used for unknown indication
     Route: 050
  4. IRON [Concomitant]
     Active Substance: IRON
     Indication: Blood iron decreased
     Route: 050

REACTIONS (9)
  - Abdominal discomfort [Unknown]
  - Constipation [Not Recovered/Not Resolved]
  - Faeces discoloured [Not Recovered/Not Resolved]
  - Alopecia [Not Recovered/Not Resolved]
  - Hot flush [Not Recovered/Not Resolved]
  - Vomiting [Not Recovered/Not Resolved]
  - Pruritus [Unknown]
  - Abdominal pain upper [Not Recovered/Not Resolved]
  - Diarrhoea [Not Recovered/Not Resolved]

NARRATIVE: CASE EVENT DATE: 20250601
